FAERS Safety Report 7237783-1 (Version None)
Quarter: 2011Q1

REPORT INFORMATION
  Report Type: 
  Country: None (occurrence: None)
  Receive Date: 20110121
  Receipt Date: 20110113
  Transmission Date: 20110831
  Serious: Yes (Other)
  Sender: FDA-Public Use
  Company Number: US-US-EMD SERONO, INC.-7035111

PATIENT
  Sex: Female
  Weight: 58 kg

DRUGS (6)
  1. IODINE COMPOUNDS [Concomitant]
  2. NON-STEROIDAL ANTI-INFLAMMATORY DRUG [Concomitant]
  3. SULFONAMIDES [Concomitant]
  4. REBIF [Suspect]
     Indication: MULTIPLE SCLEROSIS
     Route: 058
     Dates: start: 20011201
  5. QUINOLONES [Concomitant]
  6. BETA BLOCKERS [Concomitant]

REACTIONS (4)
  - MOTOR DYSFUNCTION [None]
  - VERTIGO [None]
  - NAUSEA [None]
  - FEELING ABNORMAL [None]
